FAERS Safety Report 12301751 (Version 4)
Quarter: 2019Q3

REPORT INFORMATION
  Report Type: Spontaneous
  Country: CO (occurrence: CO)
  Receive Date: 20160425
  Receipt Date: 20190909
  Transmission Date: 20191004
  Serious: Yes (Other)
  Sender: FDA-Public Use
  Company Number: CO-PFIZER INC-2016229339

PATIENT
  Age: 57 Year
  Sex: Female

DRUGS (1)
  1. XELJANZ [Suspect]
     Active Substance: TOFACITINIB CITRATE
     Indication: RHEUMATOID ARTHRITIS
     Dosage: 5 MG, 2X/DAY
     Route: 048
     Dates: start: 2016

REACTIONS (16)
  - Gait inability [Unknown]
  - Intentional product misuse [Unknown]
  - Hand fracture [Unknown]
  - Arthropod bite [Unknown]
  - Vomiting [Unknown]
  - Pain [Unknown]
  - Memory impairment [Unknown]
  - Gastric disorder [Unknown]
  - Arthralgia [Unknown]
  - Joint swelling [Unknown]
  - Feeling hot [Unknown]
  - Arthritis infective [Unknown]
  - Abdominal pain upper [Unknown]
  - Diarrhoea [Unknown]
  - Torticollis [Not Recovered/Not Resolved]
  - Asthenia [Unknown]

NARRATIVE: CASE EVENT DATE: 20160301
